FAERS Safety Report 23827861 (Version 1)
Quarter: 2024Q2

REPORT INFORMATION
  Report Type: Spontaneous
  Country: US (occurrence: US)
  Receive Date: 20240507
  Receipt Date: 20240507
  Transmission Date: 20240715
  Serious: No
  Sender: FDA-Public Use
  Company Number: US-BAUSCHBL-2024BNL026345

PATIENT
  Age: 87 Year
  Sex: Female
  Weight: 58.96 kg

DRUGS (2)
  1. XIIDRA [Suspect]
     Active Substance: LIFITEGRAST
     Indication: Dry eye
     Dosage: 1 GTT BID
     Route: 047
     Dates: start: 2020
  2. METOPROLOL [Suspect]
     Active Substance: METOPROLOL
     Indication: Product used for unknown indication
     Route: 065

REACTIONS (4)
  - Burning sensation [Unknown]
  - Visual impairment [Unknown]
  - Product residue present [Unknown]
  - Vision blurred [Unknown]
